FAERS Safety Report 9663777 (Version 3)
Quarter: 2013Q4

REPORT INFORMATION
  Report Type: Report from Study
  Country: CA (occurrence: CA)
  Receive Date: 20131101
  Receipt Date: 20131203
  Transmission Date: 20140711
  Serious: Yes (Hospitalization)
  Sender: FDA-Public Use
  Company Number: PHHY2013CA123043

PATIENT
  Sex: Male

DRUGS (9)
  1. CLOZARIL [Suspect]
     Indication: SCHIZOPHRENIA
     Dosage: 12.5 MG, BID
     Dates: start: 20130920
  2. CLOZARIL [Suspect]
     Indication: BIPOLAR DISORDER
     Dosage: 25 MG, BID
     Dates: start: 20130929
  3. CLOZARIL [Suspect]
     Dosage: 75 MG, DAILY (25 MG EVERY MORNING AND 50 MG AT BEDTIME)
     Dates: start: 20131001
  4. CLOZARIL [Suspect]
     Dosage: 50 MG, BID
     Route: 048
     Dates: start: 20131028
  5. EPIVAL [Concomitant]
     Dosage: 2000 MG, DAILY (500 MG QAM AND 1500 QHS)
     Dates: start: 201303
  6. ATIVAN [Concomitant]
     Dosage: 1.5 MG, QD (1.5 MG, QHS)
     Dates: start: 201307
  7. PREVACID [Concomitant]
     Dosage: 30 UKN, DAILY
  8. SYNTHROID [Concomitant]
     Dosage: 88 MG, DAILY
  9. SEROQUEL [Concomitant]
     Dosage: 25 MG, BID
     Dates: start: 201307

REACTIONS (10)
  - Subdural haematoma [Recovered/Resolved]
  - Rash maculo-papular [Recovered/Resolved]
  - Myoclonus [Recovered/Resolved]
  - Productive cough [Recovered/Resolved]
  - Body temperature increased [Recovered/Resolved]
  - Dysphagia [Recovered/Resolved]
  - Headache [Recovered/Resolved]
  - Bronchitis [Recovered/Resolved]
  - Respiratory tract infection viral [Recovered/Resolved]
  - Neutropenia [Recovered/Resolved]
